FAERS Safety Report 8321775-5 (Version None)
Quarter: 2012Q2

REPORT INFORMATION
  Report Type: 
  Country: None (occurrence: None)
  Receive Date: 20120430
  Receipt Date: 20120424
  Transmission Date: 20120825
  Serious: Yes (Hospitalization, Other)
  Sender: FDA-Public Use
  Company Number: US-BAYER-2011-086526

PATIENT
  Age: 32 Year
  Sex: Female
  Weight: 74.83 kg

DRUGS (9)
  1. LORTAB [Concomitant]
  2. CEFTIN [Concomitant]
  3. YASMIN [Suspect]
     Dosage: UNK
     Dates: start: 20030101, end: 20090301
  4. MOTRIN [Concomitant]
  5. PROTONIX [Concomitant]
     Indication: GASTROOESOPHAGEAL REFLUX DISEASE
     Dosage: UNK
     Dates: start: 20090101
  6. TYLENOL (CAPLET) [Concomitant]
     Indication: PAIN
  7. BACTRIM [Concomitant]
  8. LEVOXYL [Concomitant]
  9. PHENTERMINE [Concomitant]

REACTIONS (5)
  - PAIN [None]
  - GALLBLADDER EMPYEMA [None]
  - MENTAL DISORDER [None]
  - GALLBLADDER DISORDER [None]
  - INJURY [None]
